FAERS Safety Report 25398870 (Version 1)
Quarter: 2025Q2

REPORT INFORMATION
  Report Type: Report from Study
  Country: BR (occurrence: BR)
  Receive Date: 20250604
  Receipt Date: 20250604
  Transmission Date: 20250717
  Serious: Yes (Other)
  Sender: BIOGEN
  Company Number: BR-BIOGEN-2025BI01312702

PATIENT
  Sex: Female
  Weight: 65 kg

DRUGS (1)
  1. TYSABRI [Suspect]
     Active Substance: NATALIZUMAB
     Indication: Multiple sclerosis
     Dosage: 300MG/15ML, 20MG/ML
     Route: 050

REACTIONS (4)
  - Diabetes mellitus [Unknown]
  - Multiple sclerosis relapse [Not Recovered/Not Resolved]
  - Drug ineffective [Unknown]
  - Hypertension [Unknown]

NARRATIVE: CASE EVENT DATE: 20240101
